FAERS Safety Report 15713102 (Version 3)
Quarter: 2019Q1

REPORT INFORMATION
  Report Type: Report from Study
  Country: JP (occurrence: JP)
  Receive Date: 20181212
  Receipt Date: 20190308
  Transmission Date: 20190417
  Serious: Yes (Hospitalization)
  Sender: FDA-Public Use
  Company Number: JP-EISAI MEDICAL RESEARCH-EC-2018-049024

PATIENT
  Age: 55 Year
  Sex: Female
  Weight: 51 kg

DRUGS (9)
  1. TRAMAL [Concomitant]
     Active Substance: TRAMADOL
  2. LOXOPROFEN [Concomitant]
     Active Substance: LOXOPROFEN
  3. ERIBULIN [Suspect]
     Active Substance: ERIBULIN
     Indication: ADENOID CYSTIC CARCINOMA
     Route: 041
     Dates: start: 20181128, end: 20181128
  4. ERIBULIN [Suspect]
     Active Substance: ERIBULIN
     Route: 041
     Dates: start: 20181226
  5. OXYCODONE HYDROCHLORIDE HYDRATE [Concomitant]
     Active Substance: OXYCODONE HYDROCHLORIDE
  6. LOXONIN [Concomitant]
     Active Substance: LOXOPROFEN SODIUM
  7. OXINORM [Concomitant]
  8. LANSOPRAZOLE. [Concomitant]
     Active Substance: LANSOPRAZOLE
  9. SENNOSIDE [Concomitant]
     Active Substance: SENNOSIDES

REACTIONS (2)
  - Periodontitis [Recovered/Resolved]
  - Febrile neutropenia [Recovered/Resolved]

NARRATIVE: CASE EVENT DATE: 20181207
